FAERS Safety Report 13130662 (Version 2)
Quarter: 2017Q1

REPORT INFORMATION
  Report Type: Spontaneous
  Country: JP (occurrence: JP)
  Receive Date: 20170119
  Receipt Date: 20170215
  Transmission Date: 20170428
  Serious: Yes (Other)
  Sender: FDA-Public Use
  Company Number: JP-ELI_LILLY_AND_COMPANY-JP201701004501

PATIENT
  Age: 65 Year
  Sex: Male

DRUGS (2)
  1. GEMZAR [Suspect]
     Active Substance: GEMCITABINE HYDROCHLORIDE
     Indication: PANCREATIC CARCINOMA STAGE IV
     Dosage: UNK
     Route: 042
     Dates: start: 201408
  2. TS-1 [Concomitant]
     Active Substance: GIMERACIL\OTERACIL\TEGAFUR
     Indication: PANCREATIC CARCINOMA STAGE IV
     Dosage: UNK
     Dates: start: 201408

REACTIONS (3)
  - Tumour lysis syndrome [Recovered/Resolved]
  - Disseminated intravascular coagulation [Unknown]
  - Acute kidney injury [Unknown]
